FAERS Safety Report 20135833 (Version 1)
Quarter: 2021Q4

REPORT INFORMATION
  Report Type: Spontaneous
  Country: US (occurrence: None)
  Receive Date: 20211201
  Receipt Date: 20211201
  Transmission Date: 20220303
  Serious: Yes (Hospitalization, Other)
  Sender: FDA-Public Use
  Company Number: US-FRESENIUS KABI-FK202113237

PATIENT
  Age: 60 Year
  Sex: Male

DRUGS (2)
  1. CYTARABINE [Suspect]
     Active Substance: CYTARABINE
     Indication: Myeloid leukaemia
     Dosage: INDUCTION THERAPY WITH 7 DAYS
     Route: 065
  2. DAUNORUBICIN [Suspect]
     Active Substance: DAUNORUBICIN
     Indication: Myeloid leukaemia
     Dosage: 3 DAYS
     Route: 065

REACTIONS (4)
  - Melaena [Recovered/Resolved]
  - Neutropenia [Recovered/Resolved]
  - Fatigue [Unknown]
  - Thrombocytopenia [Unknown]
